FAERS Safety Report 12986827 (Version 1)
Quarter: 2016Q4

REPORT INFORMATION
  Report Type: Spontaneous
  Country: US (occurrence: US)
  Receive Date: 20161130
  Receipt Date: 20161130
  Transmission Date: 20170207
  Serious: Yes (Hospitalization, Other)
  Sender: FDA-Public Use
  Company Number: US-TEVA-637451USA

PATIENT
  Age: 41 Year
  Sex: Female
  Weight: 69.46 kg

DRUGS (6)
  1. CLONAZEPAM. [Concomitant]
     Active Substance: CLONAZEPAM
     Dates: start: 1989
  2. AMOXICILLIN. [Concomitant]
     Active Substance: AMOXICILLIN
     Dates: start: 200305
  3. CLOZAPINE. [Suspect]
     Active Substance: CLOZAPINE
     Indication: SCHIZOPHRENIA
     Dosage: 400 MILLIGRAM DAILY; AT NIGHT
     Route: 048
     Dates: start: 199607, end: 201004
  4. DOXYCYCLINE HYCLATE. [Concomitant]
     Active Substance: DOXYCYCLINE HYCLATE
     Dates: start: 200305
  5. BENZTROPEINE [Concomitant]
     Active Substance: TROPINE BENZYLATE
     Dates: start: 1990
  6. CEFACLOR. [Concomitant]
     Active Substance: CEFACLOR
     Dates: start: 200305

REACTIONS (2)
  - White blood cell count decreased [Recovered/Resolved]
  - Pneumonia [Recovered/Resolved]

NARRATIVE: CASE EVENT DATE: 201004
